FAERS Safety Report 7674039-7 (Version None)
Quarter: 2011Q3

REPORT INFORMATION
  Report Type: 
  Country: None (occurrence: None)
  Receive Date: 20110810
  Receipt Date: 20110803
  Transmission Date: 20111222
  Serious: Yes (Other)
  Sender: FDA-Public Use
  Company Number: CA-US-EMD SERONO, INC.-7074868

PATIENT
  Sex: Male

DRUGS (1)
  1. REBIF [Suspect]
     Indication: MULTIPLE SCLEROSIS
     Route: 058
     Dates: start: 20050329, end: 20100801

REACTIONS (3)
  - DRUG INEFFECTIVE [None]
  - NON-HODGKIN'S LYMPHOMA [None]
  - PROSTATE CANCER [None]
